FAERS Safety Report 4396386-7 (Version None)
Quarter: 2004Q3

REPORT INFORMATION
  Report Type: 
  Country: None (occurrence: None)
  Receive Date: 20040708
  Receipt Date: 20040629
  Transmission Date: 20050211
  Serious: Yes (Other)
  Sender: FDA-Public Use
  Company Number: 54756/447

PATIENT
  Age: 23 Year
  Sex: Female

DRUGS (3)
  1. LEVONELLE-2 (LEVONORGESTREL  0.75 MG TABLET) [Suspect]
     Dosage: PO
     Route: 048
  2. NORETHINDRONE ACETATE AND ETHINYL ESTRADIOL [Concomitant]
  3. ST JOHN'S WORT [Concomitant]

REACTIONS (2)
  - DRUG INTERACTION [None]
  - UNINTENDED PREGNANCY [None]
